FAERS Safety Report 10161230 (Version 1)
Quarter: 2014Q2

REPORT INFORMATION
  Report Type: Report from Study
  Country: AR (occurrence: AR)
  Receive Date: 20140508
  Receipt Date: 20140508
  Transmission Date: 20141212
  Serious: Yes (Other)
  Sender: FDA-Public Use
  Company Number: PHHY2014AR056025

PATIENT
  Sex: Male

DRUGS (2)
  1. EXFORGE [Suspect]
     Indication: HYPERTENSION
     Dosage: 1 DF, (160/10 MG) DAILY
     Route: 048
  2. EXFORGE [Suspect]
     Indication: CARDIAC DISORDER

REACTIONS (3)
  - Cataract [Recovering/Resolving]
  - Eye haemorrhage [Recovering/Resolving]
  - Type 1 diabetes mellitus [Unknown]
